FAERS Safety Report 10601600 (Version 4)
Quarter: 2016Q1

REPORT INFORMATION
  Report Type: Spontaneous
  Country: US (occurrence: US)
  Receive Date: 20141124
  Receipt Date: 20160128
  Transmission Date: 20160525
  Serious: No
  Sender: FDA-Public Use
  Company Number: US-PFIZER INC-2014319829

PATIENT
  Age: 78 Year
  Sex: Female
  Weight: 82 kg

DRUGS (6)
  1. PRISTIQ EXTENDED RELEASE [Concomitant]
     Active Substance: DESVENLAFAXINE SUCCINATE
     Indication: DEPRESSION
     Dosage: UNK
  2. CELEBREX [Suspect]
     Active Substance: CELECOXIB
     Indication: ARTHRITIS
  3. CELEBREX [Suspect]
     Active Substance: CELECOXIB
     Indication: ARTHROPATHY
     Dosage: 100 MG, 1X/DAY
     Route: 048
  4. CELEBREX [Suspect]
     Active Substance: CELECOXIB
     Indication: ROUTINE HEALTH MAINTENANCE
     Dosage: 100 MG, 1X/DAY
     Dates: start: 201311
  5. CELEBREX [Suspect]
     Active Substance: CELECOXIB
     Indication: PAIN
  6. CELEBREX [Suspect]
     Active Substance: CELECOXIB
     Indication: HIP ARTHROPLASTY

REACTIONS (2)
  - Depression [Not Recovered/Not Resolved]
  - Condition aggravated [Not Recovered/Not Resolved]
